FAERS Safety Report 5555428-3 (Version None)
Quarter: 2007Q4

REPORT INFORMATION
  Report Type: 
  Country: None (occurrence: None)
  Receive Date: 20071213
  Receipt Date: 20071205
  Transmission Date: 20080405
  Serious: Yes (Other)
  Sender: FDA-Public Use
  Company Number: IE-ABBOTT-07P-229-0419279-00

PATIENT
  Sex: Female
  Weight: 85 kg

DRUGS (6)
  1. REDUCTIL [Suspect]
     Indication: OBESITY
     Route: 048
     Dates: start: 20070517, end: 20070711
  2. PRITOR [Concomitant]
     Indication: HYPOTENSION
     Route: 048
     Dates: start: 20070517
  3. CLOPIDOGREL [Concomitant]
     Indication: HYPOTENSION
     Route: 048
     Dates: start: 20070517
  4. BECLOMETHASONE DIPROPIONATE [Concomitant]
     Indication: SPIROMETRY ABNORMAL
     Route: 055
     Dates: start: 20070517, end: 20070717
  5. G TRAVATAN [Concomitant]
     Indication: DRUG USE FOR UNKNOWN INDICATION
     Route: 061
     Dates: start: 20070123
  6. LEKOVIT CA [Concomitant]
     Indication: OSTEOPOROSIS PROPHYLAXIS
     Route: 048
     Dates: start: 20070726

REACTIONS (6)
  - ANXIETY [None]
  - HEART RATE INCREASED [None]
  - INSOMNIA [None]
  - MALAISE [None]
  - PALPITATIONS [None]
  - TACHYCARDIA [None]
